FAERS Safety Report 7698589-2 (Version None)
Quarter: 2011Q3

REPORT INFORMATION
  Report Type: 
  Country: None (occurrence: None)
  Receive Date: 20110818
  Receipt Date: 20110818
  Transmission Date: 20111222
  Serious: Yes (Hospitalization)
  Sender: FDA-Public Use
  Company Number: None

PATIENT
  Sex: Female
  Weight: 61.36 kg

DRUGS (4)
  1. CARBOPLATIN [Suspect]
     Dosage: 742 MG
  2. TAXOL [Suspect]
     Dosage: 288 MG
  3. PHENERGAN HCL [Concomitant]
  4. G-CSF (FILGRASTIM, AMGEN) [Suspect]
     Dosage: 6 MG

REACTIONS (7)
  - HAEMATOCRIT DECREASED [None]
  - VOMITING [None]
  - THROMBOCYTOPENIA [None]
  - SMALL INTESTINAL OBSTRUCTION [None]
  - HAEMOGLOBIN DECREASED [None]
  - NAUSEA [None]
  - PAIN [None]
